FAERS Safety Report 4370525-6 (Version None)
Quarter: 2004Q2

REPORT INFORMATION
  Report Type: 
  Country: None (occurrence: None)
  Receive Date: 20040528
  Receipt Date: 20040518
  Transmission Date: 20050107
  Serious: Yes (Death)
  Sender: FDA-Public Use
  Company Number: US-JNJFOC-20040204151

PATIENT
  Age: 57 Year
  Sex: Female
  Weight: 70.0807 kg

DRUGS (8)
  1. DITROPAN [Suspect]
     Dosage: 5 MG, 2 IN 1 DAY, ORAL
     Route: 048
     Dates: start: 19920107
  2. ALBUTEROL INHALER (SALBUTAMOL) [Concomitant]
  3. GLUCOPHAGE [Concomitant]
  4. PREMARIN [Concomitant]
  5. PROZAC [Concomitant]
  6. ADVAIR (SERETIDE MITE) [Concomitant]
  7. VOLMAX [Concomitant]
  8. FLUOXETINE [Concomitant]

REACTIONS (4)
  - LUNG LOBECTOMY [None]
  - MALIGNANT NEOPLASM PROGRESSION [None]
  - NON-SMALL CELL LUNG CANCER [None]
  - POST PROCEDURAL COMPLICATION [None]
